FAERS Safety Report 8687758 (Version 3)
Quarter: 2013Q4

REPORT INFORMATION
  Report Type: Spontaneous
  Country: US (occurrence: US)
  Receive Date: 20120727
  Receipt Date: 20131101
  Transmission Date: 20140711
  Serious: No
  Sender: FDA-Public Use
  Company Number: US-009507513-2012SP032973

PATIENT
  Sex: Female
  Weight: 81.65 kg

DRUGS (8)
  1. CLARITYN ALLERGY [Suspect]
     Indication: THROAT IRRITATION
     Dosage: 10 MG, QD
     Route: 048
  2. CLARITYN ALLERGY [Suspect]
     Indication: NASAL DISCOMFORT
  3. CLARITYN ALLERGY [Suspect]
     Indication: RHINORRHOEA
  4. SYNTHROID [Concomitant]
     Indication: THYROID DISORDER
     Dosage: UNK UNK, UNKNOWN
  5. PROPRANOLOL HYDROCHLORIDE [Concomitant]
     Indication: CARDIAC DISORDER
     Dosage: UNK UNK, UNKNOWN
  6. ASPIRIN [Concomitant]
     Indication: PRODUCT USED FOR UNKNOWN INDICATION
     Dosage: UNK UNK, UNKNOWN
  7. VITAMINS (UNSPECIFIED) [Concomitant]
     Indication: PRODUCT USED FOR UNKNOWN INDICATION
     Dosage: UNK UNK, UNKNOWN
  8. TRIAMTERENE [Concomitant]
     Indication: OEDEMA PERIPHERAL
     Dosage: UNK UNK, UNKNOWN

REACTIONS (1)
  - No therapeutic response [Unknown]
